FAERS Safety Report 6167069-8 (Version None)
Quarter: 2009Q2

REPORT INFORMATION
  Report Type: 
  Country: None (occurrence: None)
  Receive Date: 20090424
  Receipt Date: 20090422
  Transmission Date: 20091009
  Serious: Yes (Life-Threatening, Hospitalization, Other)
  Sender: FDA-Public Use
  Company Number: BE-BRISTOL-MYERS SQUIBB COMPANY-14396808

PATIENT
  Age: 67 Year
  Sex: Male

DRUGS (15)
  1. SPRYCEL [Suspect]
     Indication: CHRONIC MYELOID LEUKAEMIA
     Route: 048
     Dates: start: 20071211
  2. INSULATARD [Concomitant]
     Route: 058
  3. NOVONORM [Concomitant]
  4. METFORMAX [Concomitant]
  5. CORDARONE [Concomitant]
  6. FUROSEMIDE [Concomitant]
  7. ALDACTONE [Concomitant]
     Dosage: PER 2 DAGEN
  8. XANAX [Concomitant]
     Dosage: ZELDEN
  9. ZESTORETIC [Concomitant]
     Dosage: 1 DOSAGE FORM=1/2 CO
  10. KREDEX [Concomitant]
     Dosage: 2PER 1/2 DAY
  11. ASPIRIN [Concomitant]
     Dosage: 1 DOSAGE FORM=1 CO; ASPIRINE JR
  12. SIMVASTATIN [Concomitant]
  13. AMLODIPINE BESYLATE [Concomitant]
  14. BUMEX [Concomitant]
  15. ZANTAC [Concomitant]

REACTIONS (3)
  - CARDIAC FAILURE [None]
  - PULMONARY OEDEMA [None]
  - RESPIRATORY FAILURE [None]
